FAERS Safety Report 25071801 (Version 1)
Quarter: 2025Q1

REPORT INFORMATION
  Report Type: Spontaneous
  Country: US (occurrence: US)
  Receive Date: 20250313
  Receipt Date: 20250313
  Transmission Date: 20250409
  Serious: Yes (Other)
  Sender: TEVA
  Company Number: US-TEVA-VS-3305543

PATIENT
  Age: 71 Year
  Sex: Female
  Weight: 62 kg

DRUGS (1)
  1. AUSTEDO [Suspect]
     Active Substance: DEUTETRABENAZINE
     Indication: Tardive dyskinesia
     Dosage: STARTED ABOUT TWO YEARS AGO
     Route: 065

REACTIONS (6)
  - Tooth loss [Unknown]
  - Inability to afford medication [Unknown]
  - Bruxism [Not Recovered/Not Resolved]
  - Product use in unapproved indication [Unknown]
  - Gastrointestinal disorder [Unknown]
  - Body height decreased [Unknown]
